FAERS Safety Report 7445025-7 (Version None)
Quarter: 2011Q2

REPORT INFORMATION
  Report Type: 
  Country: None (occurrence: None)
  Receive Date: 20110429
  Receipt Date: 20110418
  Transmission Date: 20111010
  Serious: Yes (Death, Hospitalization, Other)
  Sender: FDA-Public Use
  Company Number: US-ACTELION-A-US2011-46965

PATIENT

DRUGS (1)
  1. VENTAVIS [Suspect]
     Indication: PULMONARY ARTERIAL HYPERTENSION
     Dosage: 20 UG, UNK
     Route: 055
     Dates: start: 20110221

REACTIONS (4)
  - HIP FRACTURE [None]
  - HYPOTENSION [None]
  - DEATH [None]
  - DRUG HYPERSENSITIVITY [None]
